FAERS Safety Report 9248642 (Version 1)
Quarter: 2013Q2

REPORT INFORMATION
  Report Type: Report from Study
  Country: US (occurrence: US)
  Receive Date: 20130423
  Receipt Date: 20130423
  Transmission Date: 20140414
  Serious: Yes (Death)
  Sender: FDA-Public Use
  Company Number: US-ROCHE-1199522

PATIENT
  Sex: Male
  Weight: 79.9 kg

DRUGS (4)
  1. XELODA [Suspect]
     Indication: COLON CANCER
     Route: 048
     Dates: end: 201302
  2. XELODA [Suspect]
     Dosage: 1500 MG EVERY A.M, 1000 MG EVERY PM
     Route: 048
     Dates: start: 20121107
  3. XELODA [Suspect]
     Route: 048
     Dates: start: 20121101, end: 20130226
  4. 5-FLUOROURACIL [Concomitant]
     Indication: COLON CANCER

REACTIONS (2)
  - Myocardial infarction [Fatal]
  - Palmar-plantar erythrodysaesthesia syndrome [Unknown]
